FAERS Safety Report 9585850 (Version 2)
Quarter: 2013Q4

REPORT INFORMATION
  Report Type: Spontaneous
  Country: DE (occurrence: None)
  Receive Date: 20131001
  Receipt Date: 20131008
  Transmission Date: 20140711
  Serious: Yes (Life-Threatening)
  Sender: FDA-Public Use
  Company Number: FK201304421

PATIENT
  Age: 63 Year
  Sex: Female

DRUGS (5)
  1. CEFUROXIM [Suspect]
     Indication: PROPHYLAXIS
     Route: 042
  2. BELOC ZOC (METOPROLOL SUCCINATE) [Concomitant]
  3. L-THYROXIN (LEVOTHYROXINE SODIUM) [Concomitant]
  4. SORTIS (ATORVASTATIN) [Concomitant]
  5. SARTAN (LOSARTAN POTASSIUM) [Concomitant]

REACTIONS (6)
  - Feeling hot [None]
  - Abdominal pain [None]
  - Tachycardia [None]
  - Bronchospasm [None]
  - Hypotension [None]
  - Hypersensitivity [None]
